FAERS Safety Report 13460689 (Version 1)
Quarter: 2017Q2

REPORT INFORMATION
  Report Type: Spontaneous
  Country: US (occurrence: US)
  Receive Date: 20170420
  Receipt Date: 20170420
  Transmission Date: 20170830
  Serious: No
  Sender: FDA-Public Use
  Company Number: US-ASTRAZENECA-2017SE40815

PATIENT
  Sex: Female

DRUGS (1)
  1. SEROQUEL XR [Suspect]
     Active Substance: QUETIAPINE FUMARATE
     Route: 048

REACTIONS (6)
  - Lethargy [Unknown]
  - Palpitations [Unknown]
  - Weight increased [Unknown]
  - Withdrawal syndrome [Unknown]
  - Diabetes mellitus [Unknown]
  - Cardiac disorder [Unknown]
